FAERS Safety Report 5540808-2 (Version None)
Quarter: 2007Q4

REPORT INFORMATION
  Report Type: 
  Country: None (occurrence: None)
  Receive Date: 20071129
  Receipt Date: 20070807
  Transmission Date: 20080405
  Serious: Yes (Other)
  Sender: FDA-Public Use
  Company Number: US200708001249

PATIENT
  Age: 65 Year
  Sex: Female
  Weight: 180 kg

DRUGS (9)
  1. ZYPREXA [Suspect]
     Indication: BIPOLAR I DISORDER
     Dosage: 5 MG, EACH EVENING, ORAL; 2.5 MG,
     Route: 048
     Dates: start: 20070726
  2. ZYPREXA [Suspect]
     Indication: BIPOLAR I DISORDER
     Dosage: 5 MG, EACH EVENING, ORAL; 2.5 MG,
     Route: 048
     Dates: start: 20070805
  3. CYMBALTA [Suspect]
     Dosage: 60 MG, DAILY (1/D),
     Dates: start: 20050101
  4. LOTREL [Concomitant]
  5. PRILOSEC [Concomitant]
  6. TOPROL-XL [Concomitant]
  7. NIASPAN [Concomitant]
  8. ASPIRIN [Concomitant]
  9. CRESTOR [Concomitant]

REACTIONS (1)
  - PITTING OEDEMA [None]
